FAERS Safety Report 22169508 (Version 1)
Quarter: 2023Q2

REPORT INFORMATION
  Report Type: Spontaneous
  Country: US (occurrence: US)
  Receive Date: 20230404
  Receipt Date: 20230404
  Transmission Date: 20230721
  Serious: Yes (Other)
  Sender: FDA-Public Use
  Company Number: US-002147023-NVSC2023US076514

PATIENT
  Age: 78 Year
  Sex: Female

DRUGS (3)
  1. BEOVU [Suspect]
     Active Substance: BROLUCIZUMAB-DBLL
     Indication: Age-related macular degeneration
     Dosage: UNK (LOADING DOSE) OD (TIME PERIOD 57)
     Route: 065
     Dates: start: 20200110
  2. BEOVU [Suspect]
     Active Substance: BROLUCIZUMAB-DBLL
     Dosage: UNK (LOADING DOSE) OD (TIME PERIOD 55)
     Route: 065
     Dates: start: 20200305
  3. BEOVU [Suspect]
     Active Substance: BROLUCIZUMAB-DBLL
     Dosage: UNK
     Route: 065
     Dates: start: 20200330

REACTIONS (4)
  - Chorioretinitis [Recovered/Resolved]
  - Vitritis [Unknown]
  - Subretinal fluid [Unknown]
  - Visual acuity reduced [Recovering/Resolving]

NARRATIVE: CASE EVENT DATE: 20200316
